FAERS Safety Report 15220638 (Version 1)
Quarter: 2018Q3

REPORT INFORMATION
  Report Type: Spontaneous
  Country: US (occurrence: US)
  Receive Date: 20180731
  Receipt Date: 20180731
  Transmission Date: 20181010
  Serious: Yes (Other)
  Sender: FDA-Public Use
  Company Number: US-GLAXOSMITHKLINE-US2018133902

PATIENT

DRUGS (1)
  1. GAS?X [Suspect]
     Active Substance: DIMETHICONE
     Indication: FLATULENCE
     Dosage: UNK

REACTIONS (4)
  - Proctalgia [Unknown]
  - Haemorrhage [Unknown]
  - Drug ineffective [Unknown]
  - Rectal haemorrhage [Unknown]
